FAERS Safety Report 26096671 (Version 1)
Quarter: 2025Q4

REPORT INFORMATION
  Report Type: Other
  Country: GB (occurrence: GB)
  Receive Date: 20251127
  Receipt Date: 20251127
  Transmission Date: 20260118
  Serious: Yes (Other)
  Sender: ZYDUS PHARM
  Company Number: None

PATIENT

DRUGS (2)
  1. APIXABAN [Suspect]
     Active Substance: APIXABAN
     Indication: Paroxysmal arrhythmia
     Dosage: 5 MILLIGRAM TWICE A DAY
     Route: 065
     Dates: start: 20251006
  2. LATANOPROST\TIMOLOL [Concomitant]
     Active Substance: LATANOPROST\TIMOLOL
     Indication: Glaucoma
     Dosage: UNK
     Route: 065

REACTIONS (3)
  - Genital herpes [Not Recovered/Not Resolved]
  - Condition aggravated [Unknown]
  - Sleep disorder [Unknown]
